FAERS Safety Report 24160798 (Version 1)
Quarter: 2024Q3

REPORT INFORMATION
  Report Type: Spontaneous
  Country: IT (occurrence: IT)
  Receive Date: 20240801
  Receipt Date: 20240801
  Transmission Date: 20241017
  Serious: Yes (Other)
  Sender: TEVA
  Company Number: None

PATIENT
  Age: 75 Year
  Sex: Male

DRUGS (3)
  1. EPIRUBICIN [Suspect]
     Active Substance: EPIRUBICIN
     Indication: Soft tissue neoplasm
     Dosage: 100 MG
     Route: 042
     Dates: start: 20240520, end: 20240520
  2. IFOSFAMIDE [Suspect]
     Active Substance: IFOSFAMIDE
     Indication: Soft tissue neoplasm
     Dosage: 4800 MG IN CONTINUOUS INFUSION 7 DAYS
     Route: 042
     Dates: start: 20240520, end: 20240520
  3. MESNA [Suspect]
     Active Substance: MESNA
     Indication: Prophylaxis
     Dosage: 4800MG IN CONTINUOUS INFUSION OVER 7 DAYS
     Route: 042
     Dates: start: 20240520, end: 20240520

REACTIONS (1)
  - Thrombocytopenia [Not Recovered/Not Resolved]

NARRATIVE: CASE EVENT DATE: 20240611
